FAERS Safety Report 18392410 (Version 1)
Quarter: 2020Q4

REPORT INFORMATION
  Report Type: Spontaneous
  Country: US (occurrence: US)
  Receive Date: 20201016
  Receipt Date: 20201016
  Transmission Date: 20210114
  Serious: Yes (Other)
  Sender: FDA-Public Use
  Company Number: None

PATIENT
  Age: 45 Year
  Sex: Male
  Weight: 104.1 kg

DRUGS (5)
  1. METHYLPREDNISOLONE 60MG Q12H [Concomitant]
     Dates: start: 20201008, end: 20201010
  2. REMDESIVIR. [Suspect]
     Active Substance: REMDESIVIR
     Indication: COVID-19
     Dosage: ?          OTHER FREQUENCY:ONCE;?
     Route: 042
     Dates: start: 20201009, end: 20201009
  3. CEFTRIAXONE 1GM Q24H [Concomitant]
     Dates: start: 20201008, end: 20201010
  4. ENOXAPARIN 40MG QD DAILY [Concomitant]
     Dates: start: 20201007, end: 20201012
  5. DEXTROMETHORPHAN/GUAIFENACIN 30/600MG  Q12H [Concomitant]
     Dates: start: 20201008, end: 20201012

REACTIONS (2)
  - Product dosage form issue [None]
  - Liver function test increased [None]

NARRATIVE: CASE EVENT DATE: 20201010
